FAERS Safety Report 10956237 (Version 1)
Quarter: 2015Q1

REPORT INFORMATION
  Report Type: Spontaneous
  Country: US (occurrence: None)
  Receive Date: 20150325
  Receipt Date: 20150325
  Transmission Date: 20150721
  Serious: Yes (Hospitalization)
  Sender: FDA-Public Use
  Company Number: None

PATIENT
  Age: 62 Year
  Sex: Male

DRUGS (2)
  1. IMBRUVICA [Suspect]
     Active Substance: IBRUTINIB
     Indication: PRODUCT USED FOR UNKNOWN INDICATION
     Route: 048
     Dates: start: 20140510
  2. TYLENOL [Concomitant]
     Active Substance: ACETAMINOPHEN

REACTIONS (11)
  - Peripheral swelling [None]
  - Paraesthesia [None]
  - Dyspepsia [None]
  - Oropharyngeal pain [None]
  - Diarrhoea [None]
  - Chest discomfort [None]
  - Pain in extremity [None]
  - Fall [None]
  - Dizziness [None]
  - Contusion [None]
  - Dry skin [None]

NARRATIVE: CASE EVENT DATE: 20150323
